FAERS Safety Report 4505145-3 (Version None)
Quarter: 2004Q4

REPORT INFORMATION
  Report Type: 
  Country: None (occurrence: None)
  Receive Date: 20041117
  Receipt Date: 20041117
  Transmission Date: 20050328
  Serious: Yes (Hospitalization)
  Sender: FDA-Public Use
  Company Number: None

PATIENT
  Age: 58 Year
  Sex: Male

DRUGS (9)
  1. QUETINPINE [Suspect]
     Indication: NIGHTMARE
     Dosage: 400 ML QHS
     Dates: start: 20040201
  2. METHADONE [Suspect]
     Indication: PAIN
     Dosage: 5 ML  Q 8 H
     Dates: start: 20040601
  3. LORAZEPAM [Suspect]
     Indication: ANXIETY
     Dosage: 0.5 ML BID 1M Q HS
     Dates: start: 20040401
  4. ASPIRIN [Concomitant]
  5. PLAVIX [Concomitant]
  6. LOPID [Concomitant]
  7. LISINOPRIL [Concomitant]
  8. METOPROLOL [Concomitant]
  9. NAPROXEN [Concomitant]

REACTIONS (1)
  - CONFUSIONAL STATE [None]
